FAERS Safety Report 14934523 (Version 2)
Quarter: 2018Q2

REPORT INFORMATION
  Report Type: Spontaneous
  Country: DE (occurrence: DE)
  Receive Date: 20180524
  Receipt Date: 20180615
  Transmission Date: 20180711
  Serious: Yes (Other)
  Sender: FDA-Public Use
  Company Number: DE-DRREDDYS-GER/GER/18/0099303

PATIENT
  Age: 45 Year
  Sex: Female

DRUGS (5)
  1. VALPROIC ACID. [Concomitant]
     Active Substance: VALPROIC ACID
     Indication: PRODUCT USED FOR UNKNOWN INDICATION
  2. QUETIAPINE. [Suspect]
     Active Substance: QUETIAPINE
  3. ABILIFY [Suspect]
     Active Substance: ARIPIPRAZOLE
     Indication: SCHIZOAFFECTIVE DISORDER DEPRESSIVE TYPE
     Dosage: 5 MG ONCE A DAY FROM 19-SEP-2017 TO 26-SEP-2017?10 MG ONCE A DAY FROM 27-SEP-2017 TO 02-OCT-2017
     Route: 048
     Dates: start: 20170919, end: 20170926
  4. ABILIFY [Suspect]
     Active Substance: ARIPIPRAZOLE
     Route: 048
     Dates: start: 20170927, end: 20171002
  5. QUETIAPINE. [Suspect]
     Active Substance: QUETIAPINE
     Indication: PRODUCT USED FOR UNKNOWN INDICATION
     Dosage: RECENT DOSAGE WAS 300 MG

REACTIONS (3)
  - Weight increased [Unknown]
  - Prescribed underdose [Recovered/Resolved]
  - Ventricular extrasystoles [Unknown]

NARRATIVE: CASE EVENT DATE: 20170803
